FAERS Safety Report 10779860 (Version 1)
Quarter: 2015Q1

REPORT INFORMATION
  Report Type: Spontaneous
  Country: DE (occurrence: None)
  Receive Date: 20150206
  Receipt Date: 20150206
  Transmission Date: 20150721
  Serious: Yes (Other)
  Sender: FDA-Public Use
  Company Number: DE-H14001-15-00193

PATIENT
  Age: 73 Year
  Sex: Male
  Weight: 80 kg

DRUGS (8)
  1. PROPOFOL (PROPOFOL) [Concomitant]
     Active Substance: PROPOFOL
  2. SUFENTANIL (SUFENTANIL) [Concomitant]
  3. AMLODIPIN (AMLODIPINE) [Concomitant]
  4. CEFAZOLIN (CEFAZOLIN) [Suspect]
     Active Substance: CEFAZOLIN
     Indication: ANTIBIOTIC PROPHYLAXIS
     Route: 042
     Dates: start: 20141229
  5. ATRACURIUM (ATRACURIUM) [Concomitant]
  6. SEVOFLURAN (SEVOFLURANE) [Concomitant]
  7. RAMIPRIL (RAMIPRIL) [Concomitant]
     Active Substance: RAMIPRIL
  8. NOVAMINSULFON (METAMIZOLE SODIUM) [Suspect]
     Active Substance: METAMIZOLE SODIUM
     Indication: POSTOPERATIVE ANALGESIA
     Route: 042
     Dates: start: 20141229

REACTIONS (4)
  - Swollen tongue [None]
  - Dysphagia [None]
  - Dysarthria [None]
  - Respiration abnormal [None]

NARRATIVE: CASE EVENT DATE: 20141229
